FAERS Safety Report 6405543-7 (Version None)
Quarter: 2009Q4

REPORT INFORMATION
  Report Type: 
  Country: None (occurrence: None)
  Receive Date: 20091019
  Receipt Date: 20091007
  Transmission Date: 20100525
  Serious: Yes (Hospitalization, Other)
  Sender: FDA-Public Use
  Company Number: TR-PFIZER INC-2009278770

PATIENT
  Age: 45 Year

DRUGS (1)
  1. SUTENT [Suspect]

REACTIONS (7)
  - EYELID OEDEMA [None]
  - FACE OEDEMA [None]
  - HAIR COLOUR CHANGES [None]
  - LOCALISED OEDEMA [None]
  - MALAISE [None]
  - SKIN REACTION [None]
  - STOMATITIS [None]
